FAERS Safety Report 8914626 (Version 1)
Quarter: 2012Q4

REPORT INFORMATION
  Report Type: 
  Country: GB (occurrence: GB)
  Receive Date: 20121119
  Receipt Date: 20121119
  Transmission Date: 20130627
  Serious: Yes (Other)
  Sender: FDA-Public Use
  Company Number: GB-NOVOPROD-363763

PATIENT
  Sex: Male
  Weight: 137 kg

DRUGS (4)
  1. NOVOMIX 30 PENFILL [Suspect]
     Indication: DIABETES MELLITUS
     Dosage: 140 IU, bid
     Route: 065
     Dates: start: 200011, end: 20121028
  2. VICTOZA [Concomitant]
     Indication: DIABETES MELLITUS
     Dosage: UNK
     Route: 065
     Dates: start: 201111, end: 20121029
  3. NOVORAPID [Concomitant]
     Indication: DIABETES MELLITUS
     Dosage: 40- 60 IU
     Route: 065
  4. LANTUS [Concomitant]
     Indication: PRODUCT USED FOR UNKNOWN INDICATION
     Dosage: UNK
     Dates: start: 20121029

REACTIONS (1)
  - Vascular calcification [Not Recovered/Not Resolved]
